FAERS Safety Report 24318929 (Version 3)
Quarter: 2025Q1

REPORT INFORMATION
  Report Type: Spontaneous
  Country: GB (occurrence: GB)
  Receive Date: 20240913
  Receipt Date: 20250107
  Transmission Date: 20250408
  Serious: Yes (Life-Threatening, Hospitalization, Other)
  Sender: ALEXION PHARMACEUTICALS
  Company Number: 2024A197613

PATIENT

DRUGS (6)
  1. TEZSPIRE [Suspect]
     Active Substance: TEZEPELUMAB-EKKO
     Route: 065
  2. TEZSPIRE [Suspect]
     Active Substance: TEZEPELUMAB-EKKO
     Route: 065
  3. TEZSPIRE [Suspect]
     Active Substance: TEZEPELUMAB-EKKO
     Route: 065
  4. TEZSPIRE [Suspect]
     Active Substance: TEZEPELUMAB-EKKO
     Route: 065
  5. Comirnaty [Concomitant]
     Route: 065
  6. Comirnaty [Concomitant]
     Route: 065

REACTIONS (10)
  - Viral infection [Unknown]
  - Respiratory arrest [Unknown]
  - Blood blister [Not Recovered/Not Resolved]
  - Blister rupture [Unknown]
  - Cough [Unknown]
  - Skin discolouration [Unknown]
  - Drug ineffective [Unknown]
  - Oxygen saturation [Unknown]
  - Dyspnoea [Unknown]
  - Wheezing [Unknown]
